FAERS Safety Report 7672441-0 (Version None)
Quarter: 2011Q3

REPORT INFORMATION
  Report Type: 
  Country: None (occurrence: None)
  Receive Date: 20110804
  Receipt Date: 20110722
  Transmission Date: 20111222
  Serious: Yes (Death)
  Sender: FDA-Public Use
  Company Number: 992727

PATIENT
  Age: 67 Year
  Sex: Male
  Weight: 76.4 kg

DRUGS (7)
  1. OXALIPLATIN [Suspect]
     Indication: RECTAL CANCER METASTATIC
     Dosage: 250 MG, INTRAVENOUS  (3 WEEK)
     Dates: start: 20110118, end: 20110208
  2. CYCLIZINE [Concomitant]
  3. LOPERAMIDE HCL [Concomitant]
  4. METOCLOPRAMIDE [Concomitant]
  5. CAPECITABINE [Suspect]
     Indication: RECTAL CANCER METASTATIC
     Dosage: 1930 MG, ORAL
     Route: 048
     Dates: start: 20110118, end: 20110208
  6. OMEPRAZOLE [Concomitant]
  7. AVASTIN [Suspect]
     Indication: RECTAL CANCER METASTATIC
     Dosage: 635 MG, INTRAVENOUS
     Route: 042
     Dates: start: 20110118, end: 20110208

REACTIONS (1)
  - FISTULA [None]
